FAERS Safety Report 8787761 (Version 2)
Quarter: 2015Q1

REPORT INFORMATION
  Report Type: Report from Study
  Country: US (occurrence: US)
  Receive Date: 20120914
  Receipt Date: 20150330
  Transmission Date: 20150721
  Serious: Yes (Death)
  Sender: FDA-Public Use
  Company Number: US-ROCHE-1128000

PATIENT
  Age: 56 Year
  Sex: Male

DRUGS (15)
  1. AVASTIN [Suspect]
     Active Substance: BEVACIZUMAB
     Route: 042
  2. AVASTIN [Suspect]
     Active Substance: BEVACIZUMAB
     Route: 042
  3. DECADRON [Concomitant]
     Active Substance: DEXAMETHASONE
     Route: 042
  4. TAXOL [Concomitant]
     Active Substance: PACLITAXEL
     Route: 065
  5. CAMPTOSAR [Concomitant]
     Active Substance: IRINOTECAN HYDROCHLORIDE
     Route: 065
  6. TARCEVA [Concomitant]
     Active Substance: ERLOTINIB HYDROCHLORIDE
     Route: 065
  7. NEXAVAR [Concomitant]
     Active Substance: SORAFENIB
  8. NEULASTA [Concomitant]
     Active Substance: PEGFILGRASTIM
     Route: 065
  9. ACCUTANE [Concomitant]
     Active Substance: ISOTRETINOIN
     Dosage: FOR 3 WEEKS
     Route: 065
  10. NITROGEN MUSTARD [Concomitant]
     Active Substance: MECHLORETHAMINE OXIDE HYDROCHLORIDE
     Route: 042
  11. NAVELBINE [Concomitant]
     Active Substance: VINORELBINE TARTRATE
     Route: 042
  12. ALOXI [Concomitant]
     Active Substance: PALONOSETRON HYDROCHLORIDE
     Route: 065
  13. AVASTIN [Suspect]
     Active Substance: BEVACIZUMAB
     Indication: BRAIN NEOPLASM MALIGNANT
     Route: 042
     Dates: start: 20080822
  14. ETOPOSIDE. [Concomitant]
     Active Substance: ETOPOSIDE
  15. THALIDOMIDE [Concomitant]
     Active Substance: THALIDOMIDE
     Route: 048

REACTIONS (4)
  - Disease progression [Unknown]
  - Off label use [Unknown]
  - Death [Fatal]
  - Hemiparesis [Unknown]

NARRATIVE: CASE EVENT DATE: 20091119
